FAERS Safety Report 12119644 (Version 1)
Quarter: 2016Q1

REPORT INFORMATION
  Report Type: Spontaneous
  Country: KR (occurrence: KR)
  Receive Date: 20160226
  Receipt Date: 20160226
  Transmission Date: 20160526
  Serious: Yes (Other)
  Sender: FDA-Public Use
  Company Number: KR-MYLANLABS-2016M1008024

PATIENT

DRUGS (6)
  1. MODAFINIL. [Concomitant]
     Active Substance: MODAFINIL
     Indication: REHABILITATION THERAPY
     Route: 065
  2. ROPINIROLE. [Suspect]
     Active Substance: ROPINIROLE
     Dosage: 0.375 MG
     Route: 065
  3. ANTI-PARKINSON [Concomitant]
     Active Substance: UNSPECIFIED INGREDIENT
     Indication: REHABILITATION THERAPY
     Route: 065
  4. ROPINIROLE. [Suspect]
     Active Substance: ROPINIROLE
     Indication: REHABILITATION THERAPY
     Dosage: STARTED AT 0.25 MG/DAY
     Route: 065
  5. METHYLPHENIDATE. [Concomitant]
     Active Substance: METHYLPHENIDATE
     Indication: REHABILITATION THERAPY
     Route: 065
  6. AMANTADINE [Concomitant]
     Active Substance: AMANTADINE
     Indication: REHABILITATION THERAPY
     Route: 065

REACTIONS (1)
  - Serotonin syndrome [Recovered/Resolved]
